FAERS Safety Report 5835707-2 (Version None)
Quarter: 2008Q3

REPORT INFORMATION
  Report Type: 
  Country: None (occurrence: None)
  Receive Date: 20080722
  Receipt Date: 20071009
  Transmission Date: 20090109
  Serious: Yes (Hospitalization)
  Sender: FDA-Public Use
  Company Number: 2007BI021672

PATIENT
  Sex: Female

DRUGS (7)
  1. AVONEX [Suspect]
     Indication: MULTIPLE SCLEROSIS
     Dosage: 30 UG;QW;IM
     Route: 030
     Dates: start: 20070804, end: 20070801
  2. AVONEX [Suspect]
     Indication: MULTIPLE SCLEROSIS
     Dosage: 30 UG;QW;IM
     Route: 030
     Dates: start: 20070901
  3. TEGRETOL [Concomitant]
  4. NEURONTIN [Concomitant]
  5. AMANTADINE HCL [Concomitant]
  6. ZANTAC [Concomitant]
  7. FLONASE [Concomitant]

REACTIONS (1)
  - ABORTION SPONTANEOUS [None]
